FAERS Safety Report 6111623-6 (Version None)
Quarter: 2009Q1

REPORT INFORMATION
  Report Type: 
  Country: None (occurrence: None)
  Receive Date: 20090310
  Receipt Date: 20090310
  Transmission Date: 20090719
  Serious: Yes (Death)
  Sender: FDA-Public Use
  Company Number: None

PATIENT

DRUGS (12)
  1. OLANZAPINE [Suspect]
     Indication: ABNORMAL BEHAVIOUR
     Dosage: AS ABOVE
     Dates: start: 20090128
  2. OLANZAPINE [Suspect]
     Indication: DEMENTIA
     Dosage: AS ABOVE
     Dates: start: 20090128
  3. SEROQUEL [Suspect]
     Dosage: AS ABOVE
     Dates: start: 20071031, end: 20090128
  4. OLANZAPINE [Concomitant]
  5. BACTRIM [Concomitant]
  6. DIFLUCAN [Concomitant]
  7. MIRTAZAPINE [Concomitant]
  8. COGENTIN [Concomitant]
  9. HYDROCHLOROTHIAZIDE [Concomitant]
  10. ZOCOR [Concomitant]
  11. FOSAMAX [Concomitant]
  12. TRAZODONE HCL [Concomitant]

REACTIONS (7)
  - AGITATION [None]
  - BLOOD TRIGLYCERIDES INCREASED [None]
  - CEREBRAL HAEMORRHAGE [None]
  - CONDITION AGGRAVATED [None]
  - DRUG INEFFECTIVE [None]
  - FALL [None]
  - SLEEP DISORDER [None]
